FAERS Safety Report 21972278 (Version 1)
Quarter: 2023Q1

REPORT INFORMATION
  Report Type: Spontaneous
  Country: TW (occurrence: TW)
  Receive Date: 20230209
  Receipt Date: 20230209
  Transmission Date: 20230418
  Serious: Yes (Other)
  Sender: FDA-Public Use
  Company Number: None

PATIENT
  Age: 49 Year
  Sex: Female

DRUGS (9)
  1. LIDOCAINE [Suspect]
     Active Substance: LIDOCAINE
     Indication: Induction and maintenance of anaesthesia
     Route: 065
  2. PROPOFOL [Suspect]
     Active Substance: PROPOFOL
     Indication: Induction and maintenance of anaesthesia
     Route: 065
  3. FENTANYL [Suspect]
     Active Substance: FENTANYL
     Indication: Induction and maintenance of anaesthesia
     Dosage: 100 UG
     Route: 065
  4. ROCURONIUM BROMIDE [Suspect]
     Active Substance: ROCURONIUM BROMIDE
     Indication: Induction and maintenance of anaesthesia
     Route: 065
  5. DESFLURANE [Suspect]
     Active Substance: DESFLURANE
     Indication: Induction and maintenance of anaesthesia
     Route: 065
  6. MORPHINE [Concomitant]
     Active Substance: MORPHINE
     Indication: Procedural pain
     Route: 065
  7. KETOROLAC [Concomitant]
     Active Substance: KETOROLAC TROMETHAMINE
     Indication: Procedural pain
     Route: 065
  8. SUGAMMADEX [Concomitant]
     Active Substance: SUGAMMADEX
     Route: 065
  9. MIDAZOLAM HYDROCHLORIDE [Concomitant]
     Active Substance: MIDAZOLAM HYDROCHLORIDE
     Indication: Hyperventilation
     Route: 065

REACTIONS (1)
  - Hyperthermia malignant [Recovered/Resolved]
